FAERS Safety Report 21921117 (Version 2)
Quarter: 2023Q2

REPORT INFORMATION
  Report Type: Spontaneous
  Country: US (occurrence: US)
  Receive Date: 20230127
  Receipt Date: 20230627
  Transmission Date: 20230722
  Serious: Yes (Other)
  Sender: FDA-Public Use
  Company Number: US-JNJFOC-20230149245

PATIENT
  Age: 1 Year
  Sex: Male

DRUGS (11)
  1. TYLENOL REGULAR STRENGTH [Suspect]
     Active Substance: ACETAMINOPHEN
     Indication: Migraine
     Dosage: 7 OR MORE TIMES PER DAY DURING SECOND AND THIRD TRIMESTER
     Route: 064
     Dates: start: 200609, end: 200706
  2. TYLENOL REGULAR STRENGTH [Suspect]
     Active Substance: ACETAMINOPHEN
     Indication: Tooth infection
  3. TYLENOL REGULAR STRENGTH [Suspect]
     Active Substance: ACETAMINOPHEN
     Indication: Toothache
  4. TYLENOL EXTRA STRENGTH [Suspect]
     Active Substance: ACETAMINOPHEN
     Indication: Migraine
     Dosage: 7 OR MORE TIMES PER DAY DURING SECOND AND THIRD TRIMESTER
     Route: 064
     Dates: start: 200609, end: 200706
  5. TYLENOL EXTRA STRENGTH [Suspect]
     Active Substance: ACETAMINOPHEN
     Indication: Tooth infection
  6. TYLENOL EXTRA STRENGTH [Suspect]
     Active Substance: ACETAMINOPHEN
     Indication: Toothache
  7. ACETAMINOPHEN [Suspect]
     Active Substance: ACETAMINOPHEN
     Indication: Migraine
     Dosage: 325 MG, 7 OR MORE TIMES PER DAY DURING SECOND AND THIRD TRIMESTER
     Route: 048
     Dates: start: 200609, end: 200706
  8. ACETAMINOPHEN [Suspect]
     Active Substance: ACETAMINOPHEN
     Indication: Tooth infection
  9. ACETAMINOPHEN [Suspect]
     Active Substance: ACETAMINOPHEN
     Indication: Toothache
  10. TUMS [Concomitant]
     Active Substance: CALCIUM CARBONATE
     Indication: Nausea
  11. TUMS [Concomitant]
     Active Substance: CALCIUM CARBONATE
     Indication: Illness

REACTIONS (2)
  - Autism spectrum disorder [Unknown]
  - Foetal exposure during pregnancy [Unknown]

NARRATIVE: CASE EVENT DATE: 20090101
